FAERS Safety Report 18020222 (Version 2)
Quarter: 2020Q3

REPORT INFORMATION
  Report Type: Report from Study
  Country: TH (occurrence: TH)
  Receive Date: 20200714
  Receipt Date: 20200928
  Transmission Date: 20201103
  Serious: Yes (Hospitalization)
  Sender: FDA-Public Use
  Company Number: TH-VIIV HEALTHCARE LIMITED-TH2020GSK125505

PATIENT
  Age: 36 Year
  Sex: Male
  Weight: 74.1 kg

DRUGS (3)
  1. LAMIVUDINE. [Suspect]
     Active Substance: LAMIVUDINE
     Indication: ACUTE HIV INFECTION
     Dosage: 300 MG, QD
     Dates: start: 20170612
  2. DOLUTEGRAVIR [Suspect]
     Active Substance: DOLUTEGRAVIR
     Indication: ACUTE HIV INFECTION
     Dosage: 50 MG, QD
     Dates: start: 20170627
  3. ABACAVIR SULPHATE [Suspect]
     Active Substance: ABACAVIR
     Indication: ACUTE HIV INFECTION
     Dosage: 600 MG, QD
     Dates: start: 20170612

REACTIONS (1)
  - Influenza [Recovered/Resolved]

NARRATIVE: CASE EVENT DATE: 20200626
